FAERS Safety Report 8390487-4 (Version None)
Quarter: 2012Q2

REPORT INFORMATION
  Report Type: 
  Country: None (occurrence: None)
  Receive Date: 20120529
  Receipt Date: 20120517
  Transmission Date: 20120825
  Serious: Yes (Life-Threatening, Hospitalization)
  Sender: FDA-Public Use
  Company Number: ES-JNJFOC-20120515942

PATIENT
  Age: 58 Year
  Sex: Male

DRUGS (3)
  1. METHOTREXATE [Concomitant]
     Indication: RHEUMATOID ARTHRITIS
     Route: 048
  2. REMICADE [Suspect]
     Indication: RHEUMATOID ARTHRITIS
     Route: 042
     Dates: start: 20111216
  3. REMICADE [Suspect]
     Route: 042
     Dates: start: 20111230

REACTIONS (1)
  - CEREBELLAR HAEMATOMA [None]
